FAERS Safety Report 9799489 (Version 2)
Quarter: 2014Q2

REPORT INFORMATION
  Report Type: Report from Study
  Country: NL (occurrence: NL)
  Receive Date: 20140106
  Receipt Date: 20140501
  Transmission Date: 20141212
  Serious: Yes (Other)
  Sender: FDA-Public Use
  Company Number: NL-TEVA-453791ISR

PATIENT
  Age: 16 Year
  Sex: Female

DRUGS (2)
  1. COPAXONE [Suspect]
     Dosage: 20 MILLIGRAM DAILY;
     Route: 058
     Dates: start: 20131030, end: 20131227
  2. CONTRACEPTIVE PILL [Concomitant]

REACTIONS (1)
  - Loss of consciousness [Recovered/Resolved]
